FAERS Safety Report 6108360-0 (Version None)
Quarter: 2009Q1

REPORT INFORMATION
  Report Type: 
  Country: None (occurrence: None)
  Receive Date: 20090309
  Receipt Date: 20090225
  Transmission Date: 20090719
  Serious: Yes (Other)
  Sender: FDA-Public Use
  Company Number: US-PFIZER INC-2009155516

PATIENT
  Sex: Female
  Weight: 112.93 kg

DRUGS (7)
  1. LYRICA [Suspect]
     Indication: DIABETIC NEUROPATHY
     Dosage: 75 MG, 2X/DAY
     Route: 048
     Dates: start: 20080101
  2. ALL OTHER THERAPEUTIC PRODUCTS [Suspect]
  3. ANTIHYPERTENSIVES [Concomitant]
     Dosage: UNK
     Route: 048
  4. INSULIN [Concomitant]
     Dosage: UNK
  5. QUINAPRIL [Concomitant]
     Dosage: UNK
     Route: 048
  6. EFFEXOR [Concomitant]
     Dosage: UNK
     Route: 048
  7. OXYCONTIN [Concomitant]
     Indication: BACK INJURY
     Dosage: UNK
     Route: 048

REACTIONS (3)
  - OEDEMA PERIPHERAL [None]
  - STRESS FRACTURE [None]
  - WEIGHT INCREASED [None]
